FAERS Safety Report 21044383 (Version 2)
Quarter: 2022Q3

REPORT INFORMATION
  Report Type: Spontaneous
  Country: US (occurrence: US)
  Receive Date: 20220705
  Receipt Date: 20220721
  Transmission Date: 20221026
  Serious: No
  Sender: FDA-Public Use
  Company Number: US-BAYER-2022A092313

PATIENT
  Age: 11 Year
  Sex: Male

DRUGS (1)
  1. KOGENATE FS [Suspect]
     Active Substance: ANTIHEMOPHILIC FACTOR, HUMAN RECOMBINANT
     Dosage: 2350 IU, PRN - SEVERE BLEEDING
     Route: 042

REACTIONS (1)
  - Arthropathy [None]

NARRATIVE: CASE EVENT DATE: 20220608
